FAERS Safety Report 7089885-0 (Version None)
Quarter: 2010Q4

REPORT INFORMATION
  Report Type: 
  Country: None (occurrence: None)
  Receive Date: 20101108
  Receipt Date: 20101026
  Transmission Date: 20110411
  Serious: Yes (Other)
  Sender: FDA-Public Use
  Company Number: DE-AMGEN-DEUSP2010001517

PATIENT

DRUGS (1)
  1. NPLATE [Suspect]
     Dosage: UNK
     Dates: end: 20100101

REACTIONS (1)
  - MYELOFIBROSIS [None]
